FAERS Safety Report 5407365-2 (Version None)
Quarter: 2007Q3

REPORT INFORMATION
  Report Type: 
  Country: None (occurrence: None)
  Receive Date: 20070807
  Receipt Date: 20070725
  Transmission Date: 20080115
  Serious: Yes (Other)
  Sender: FDA-Public Use
  Company Number: US-JNJFOC-20070500832

PATIENT
  Sex: Female
  Weight: 67.13 kg

DRUGS (5)
  1. LEVAQUIN [Suspect]
     Indication: CYSTITIS
     Route: 048
  2. LEVAQUIN [Suspect]
     Indication: SINUSITIS
     Route: 048
  3. HORMONE REPLACEMENT [Concomitant]
     Indication: HORMONE REPLACEMENT THERAPY
     Route: 065
  4. PROTEIN SUPPLEMENTS [Concomitant]
     Route: 065
  5. MULTIVITAMIN [Concomitant]
     Route: 065

REACTIONS (4)
  - MUSCULOSKELETAL PAIN [None]
  - TENDON PAIN [None]
  - TENDON RUPTURE [None]
  - TENDONITIS [None]
